FAERS Safety Report 18853738 (Version 7)
Quarter: 2022Q1

REPORT INFORMATION
  Report Type: Spontaneous
  Country: US (occurrence: US)
  Receive Date: 20210205
  Receipt Date: 20220126
  Transmission Date: 20220424
  Serious: Yes (Hospitalization)
  Sender: FDA-Public Use
  Company Number: US-PFIZER INC-2021087932

PATIENT
  Age: 84 Year
  Sex: Female

DRUGS (1)
  1. XELJANZ XR [Suspect]
     Active Substance: TOFACITINIB CITRATE
     Dosage: 11 MG

REACTIONS (9)
  - Pneumonia [Unknown]
  - Mobility decreased [Unknown]
  - Malaise [Unknown]
  - Arthralgia [Unknown]
  - Dyspnoea [Unknown]
  - Psoriasis [Unknown]
  - Malaise [Unknown]
  - Aphonia [Unknown]
  - Cough [Unknown]
